FAERS Safety Report 18052293 (Version 3)
Quarter: 2021Q4

REPORT INFORMATION
  Report Type: Spontaneous
  Country: US (occurrence: US)
  Receive Date: 20200721
  Receipt Date: 20211217
  Transmission Date: 20220303
  Serious: Yes (Death, Other)
  Sender: FDA-Public Use
  Company Number: US-TAKEDA-2020TUS031396

PATIENT

DRUGS (1)
  1. ULORIC [Suspect]
     Active Substance: FEBUXOSTAT
     Indication: Gout
     Dosage: UNK
     Route: 048

REACTIONS (5)
  - Metabolic acidosis [Fatal]
  - Cardiogenic shock [Fatal]
  - Respiratory failure [Fatal]
  - Pneumonia [Fatal]
  - Cardiac arrest [Unknown]
